FAERS Safety Report 9584335 (Version 2)
Quarter: 2013Q4

REPORT INFORMATION
  Report Type: Spontaneous
  Country: US (occurrence: US)
  Receive Date: 20131002
  Receipt Date: 20131002
  Transmission Date: 20140711
  Serious: No
  Sender: FDA-Public Use
  Company Number: US-AMGEN-USASP2013042850

PATIENT
  Age: 61 Year
  Sex: Female
  Weight: 66.21 kg

DRUGS (9)
  1. ENBREL [Suspect]
     Indication: PSORIATIC ARTHROPATHY
     Dosage: 50 MG, QWK
     Route: 058
     Dates: start: 20030101
  2. ARTHROTEC [Suspect]
     Indication: OSTEOARTHRITIS
     Dosage: 75/200, BID
     Route: 048
     Dates: start: 20061021
  3. ARTHROTEC [Suspect]
     Indication: SPINAL OSTEOARTHRITIS
  4. LOVAZA [Concomitant]
     Dosage: 2 CAPSULES TWICE A DAY
  5. CALCIUM + VITAMIN D                /01483701/ [Concomitant]
     Dosage: 600-200 MG 1 TABLET WITH FOOD TWICE A DAY
  6. VAGIFEM [Concomitant]
     Dosage: 10 MUG, 2 TIMES/WK
  7. ALLEGRA [Concomitant]
     Dosage: 180 MG, AS NECESSARY
  8. SUDAFED                            /00076302/ [Concomitant]
     Dosage: 30 MG, AS NECESSARY
  9. ULTRACET [Concomitant]
     Indication: PSORIATIC ARTHROPATHY
     Dosage: 37.5-325 MG, AS NECESSARY

REACTIONS (13)
  - Contusion [Not Recovered/Not Resolved]
  - Wrong technique in drug usage process [Not Recovered/Not Resolved]
  - Injection site bruising [Recovered/Resolved]
  - Back pain [Unknown]
  - Pain in extremity [Unknown]
  - Weight abnormal [Unknown]
  - Skin plaque [Unknown]
  - Spinal osteoarthritis [Unknown]
  - Osteoarthritis [Unknown]
  - Hypercholesterolaemia [Unknown]
  - Lumbar radiculopathy [Unknown]
  - Injection site haemorrhage [Recovered/Resolved]
  - Injection site pain [Not Recovered/Not Resolved]
